FAERS Safety Report 17086755 (Version 1)
Quarter: 2019Q4

REPORT INFORMATION
  Report Type: Spontaneous
  Country: US (occurrence: US)
  Receive Date: 20191031
  Receipt Date: 20191031
  Transmission Date: 20200122
  Serious: No
  Sender: FDA-Public Use
  Company Number: None

PATIENT
  Age: 70 Year
  Sex: Male
  Weight: 129.73 kg

DRUGS (1)
  1. EZETIMIBE. [Suspect]
     Active Substance: EZETIMIBE
     Route: 048
     Dates: start: 20190620, end: 20191021

REACTIONS (6)
  - Myalgia [None]
  - Arthralgia [None]
  - Therapy cessation [None]
  - Dysstasia [None]
  - Joint stiffness [None]
  - Gait inability [None]

NARRATIVE: CASE EVENT DATE: 20191021
